FAERS Safety Report 13021859 (Version 2)
Quarter: 2017Q1

REPORT INFORMATION
  Report Type: Spontaneous
  Country: ES (occurrence: ES)
  Receive Date: 20161213
  Receipt Date: 20170112
  Transmission Date: 20170428
  Serious: Yes (Other)
  Sender: FDA-Public Use
  Company Number: ES-SUN PHARMACEUTICAL INDUSTRIES LTD-2016RR-126761

PATIENT
  Age: 39 Year
  Sex: Male

DRUGS (13)
  1. IRINOTECAN [Suspect]
     Active Substance: IRINOTECAN
     Indication: METASTASES TO LUNG
     Dosage: 180 MG/M2, ON DAY 01: 14 DAY CYCLE
     Route: 065
  2. AFLIBERCEPT [Suspect]
     Active Substance: AFLIBERCEPT
     Indication: METASTASES TO LUNG
     Dosage: 4 MG/KG, ON DAY 01: 14 DAY CYCLE
     Route: 065
  3. BEVACIZUMAB [Concomitant]
     Active Substance: BEVACIZUMAB
     Indication: COLORECTAL CANCER METASTATIC
     Dosage: ON DAY 01: 14 DAY CYCLE
     Route: 065
     Dates: start: 2011
  4. IRINOTECAN [Suspect]
     Active Substance: IRINOTECAN
     Indication: METASTASES TO LIVER
  5. CALCIUM FOLINAT [Suspect]
     Active Substance: LEUCOVORIN CALCIUM
     Indication: METASTASES TO LUNG
     Dosage: 200 MG/M2, ON DAY 01: 14 DAY CYCLE
     Route: 065
  6. CALCIUM FOLINAT [Suspect]
     Active Substance: LEUCOVORIN CALCIUM
     Indication: METASTASES TO LIVER
  7. 5-FLUOROURACIL [Suspect]
     Active Substance: FLUOROURACIL
     Indication: METASTASES TO LUNG
     Dosage: 400 MG/M2, ON DAY 01: 14 DAY CYCLE
     Route: 040
  8. FOLINIC ACID [Concomitant]
     Active Substance: LEUCOVORIN
     Indication: COLORECTAL CANCER METASTATIC
     Dosage: ON DAY 01: 14 DAY CYCLE
     Route: 065
     Dates: start: 2011
  9. OXALIPLATIN. [Suspect]
     Active Substance: OXALIPLATIN
     Indication: COLORECTAL CANCER METASTATIC
     Dosage: ON DAY 01: 14 DAY CYCLE
     Route: 065
     Dates: start: 2011
  10. AFLIBERCEPT [Suspect]
     Active Substance: AFLIBERCEPT
     Indication: METASTASES TO LIVER
  11. FLUOROURACIL. [Concomitant]
     Active Substance: FLUOROURACIL
     Indication: COLORECTAL CANCER METASTATIC
     Dosage: ON DAY 01: 14 DAY CYCLE- CONTINEOUS INFUSION
     Route: 041
     Dates: start: 2011
  12. 5-FLUOROURACIL [Suspect]
     Active Substance: FLUOROURACIL
     Indication: METASTASES TO LIVER
     Dosage: 2400 MG/M2, ON DAY 01: 14 DAY CYCLE
     Route: 041
  13. FLUOROURACIL. [Concomitant]
     Active Substance: FLUOROURACIL
     Indication: COLORECTAL CANCER METASTATIC
     Dosage: ON DAY 01: 14 DAY CYCLE
     Route: 040
     Dates: start: 2011

REACTIONS (6)
  - Neurotoxicity [Unknown]
  - Alopecia [Unknown]
  - Diarrhoea [Unknown]
  - Hypertension [Recovering/Resolving]
  - Proteinuria [Unknown]
  - Therapeutic response decreased [Unknown]
